FAERS Safety Report 7965438-4 (Version None)
Quarter: 2011Q4

REPORT INFORMATION
  Report Type: 
  Country: None (occurrence: None)
  Receive Date: 20111208
  Receipt Date: 20111126
  Transmission Date: 20120403
  Serious: Yes (Hospitalization, Other)
  Sender: FDA-Public Use
  Company Number: FI-BRISTOL-MYERS SQUIBB COMPANY-16250409

PATIENT
  Sex: Male

DRUGS (2)
  1. DIAZEPAM [Concomitant]
  2. ABILIFY [Suspect]
     Indication: BIPOLAR DISORDER
     Dosage: INITIALLY GIVEN 15MG THEN INCREASED TO 30MG

REACTIONS (3)
  - FRACTURE [None]
  - MANIA [None]
  - ROAD TRAFFIC ACCIDENT [None]
